FAERS Safety Report 7677602-2 (Version None)
Quarter: 2011Q3

REPORT INFORMATION
  Report Type: 
  Country: None (occurrence: None)
  Receive Date: 20110811
  Receipt Date: 20110811
  Transmission Date: 20111222
  Serious: Yes (Hospitalization)
  Sender: FDA-Public Use
  Company Number: None

PATIENT
  Age: 18 Year
  Sex: Female
  Weight: 58.967 kg

DRUGS (2)
  1. LEVONORGESTREL [Concomitant]
  2. LEVONORGESTREL [Suspect]
     Indication: POST COITAL CONTRACEPTION
     Dates: start: 20100814, end: 20100814

REACTIONS (3)
  - PAIN [None]
  - GENERAL PHYSICAL HEALTH DETERIORATION [None]
  - GALLBLADDER DISORDER [None]
